FAERS Safety Report 24090599 (Version 2)
Quarter: 2024Q3

REPORT INFORMATION
  Report Type: Spontaneous
  Country: ES (occurrence: ES)
  Receive Date: 20240715
  Receipt Date: 20240726
  Transmission Date: 20241017
  Serious: Yes (Other)
  Sender: JOHNSON AND JOHNSON
  Company Number: ES-JNJFOC-20240724063

PATIENT
  Age: 34 Year
  Sex: Female
  Weight: 66.9 kg

DRUGS (7)
  1. TRACLEER [Suspect]
     Active Substance: BOSENTAN
     Indication: Pulmonary hypertension
     Route: 048
     Dates: start: 201011
  2. TRACLEER [Suspect]
     Active Substance: BOSENTAN
     Route: 048
     Dates: start: 201206
  3. TRACLEER [Suspect]
     Active Substance: BOSENTAN
     Route: 048
     Dates: start: 20170827
  4. TADALAFIL [Concomitant]
     Active Substance: TADALAFIL
     Dosage: 2 TABLETS WITH BREAKFAST
     Route: 048
  5. SINTROM [Concomitant]
     Active Substance: ACENOCOUMAROL
  6. ADALAT [Concomitant]
     Active Substance: NIFEDIPINE
  7. OPSUMIT [Concomitant]
     Active Substance: MACITENTAN

REACTIONS (2)
  - Systemic lupus erythematosus [Unknown]
  - Liver disorder [Unknown]

NARRATIVE: CASE EVENT DATE: 20230320
